FAERS Safety Report 7148863-3 (Version None)
Quarter: 2010Q4

REPORT INFORMATION
  Report Type: 
  Country: None (occurrence: None)
  Receive Date: 20101209
  Receipt Date: 20101207
  Transmission Date: 20110411
  Serious: Yes (Death, Life-Threatening)
  Sender: FDA-Public Use
  Company Number: PT-B.I. PHARMACEUTICALS,INC./RIDGEFIELD-2010-DE-06676PO

PATIENT
  Age: 47 Year
  Sex: Female

DRUGS (1)
  1. DABIGATRAN [Suspect]
     Indication: ANTICOAGULANT THERAPY

REACTIONS (3)
  - CARDIO-RESPIRATORY ARREST [None]
  - EMBOLISM VENOUS [None]
  - PULMONARY EMBOLISM [None]
